FAERS Safety Report 12655574 (Version 2)
Quarter: 2016Q3

REPORT INFORMATION
  Report Type: Spontaneous
  Country: AU (occurrence: AU)
  Receive Date: 20160816
  Receipt Date: 20160922
  Transmission Date: 20161109
  Serious: Yes (Other)
  Sender: FDA-Public Use
  Company Number: AU-ALEXION-A201605878

PATIENT
  Age: 54 Year
  Sex: Male

DRUGS (7)
  1. SOLIRIS [Suspect]
     Active Substance: ECULIZUMAB
     Dosage: 1200 MG, Q2W
     Route: 042
  2. BASILIXIMAB [Concomitant]
     Active Substance: BASILIXIMAB
     Indication: RENAL TRANSPLANT
     Dosage: 20 MG DAY 0 AND 4
     Route: 065
  3. MYCOPHENOLATE SODIUM [Concomitant]
     Active Substance: MYCOPHENOLATE SODIUM
     Indication: IMMUNOSUPPRESSION
     Dosage: 720 MG, BID
     Route: 065
  4. SOLIRIS [Suspect]
     Active Substance: ECULIZUMAB
     Dosage: UNK
     Route: 042
  5. PREDNISOLONE. [Concomitant]
     Active Substance: PREDNISOLONE
     Indication: IMMUNOSUPPRESSION
     Dosage: WEANING TO 10 MG BY MONTH 3
     Route: 065
  6. TACROLIMUS. [Concomitant]
     Active Substance: TACROLIMUS
     Indication: IMMUNOSUPPRESSION
     Dosage: UNK
     Route: 065
  7. SOLIRIS [Suspect]
     Active Substance: ECULIZUMAB
     Indication: HAEMOLYTIC URAEMIC SYNDROME
     Dosage: 900 MG, UNK
     Route: 042
     Dates: start: 201410

REACTIONS (6)
  - Transplant rejection [Recovered/Resolved]
  - Platelet count decreased [Unknown]
  - Transplant rejection [Recovered/Resolved]
  - Haptoglobin decreased [Unknown]
  - Blood lactate dehydrogenase increased [Unknown]
  - Thrombotic microangiopathy [Unknown]

NARRATIVE: CASE EVENT DATE: 20150528
